FAERS Safety Report 12048587 (Version 1)
Quarter: 2016Q1

REPORT INFORMATION
  Report Type: Other
  Country: IN (occurrence: IN)
  Receive Date: 20160209
  Receipt Date: 20160209
  Transmission Date: 20160526
  Serious: Yes (Life-Threatening, Hospitalization, Other)
  Sender: FDA-Public Use
  Company Number: IN-LUPIN PHARMACEUTICALS INC.-2016-00582

PATIENT
  Age: 25 Year
  Sex: Male
  Weight: 62 kg

DRUGS (2)
  1. RIFAMPICIN [Suspect]
     Active Substance: RIFAMPIN
     Indication: TUBERCULOSIS
     Dosage: 15 TO 20 TABLETS
     Route: 048
     Dates: start: 20150511
  2. ISONIAZID. [Suspect]
     Active Substance: ISONIAZID
     Indication: TUBERCULOSIS
     Dosage: 15 TO 20 TABLETS
     Route: 048
     Dates: start: 20150511

REACTIONS (17)
  - Tachycardia [Unknown]
  - Altered state of consciousness [Unknown]
  - Rhabdomyolysis [Unknown]
  - Hepatic function abnormal [Recovering/Resolving]
  - Toxicity to various agents [Unknown]
  - Nausea [Unknown]
  - Jaundice [Unknown]
  - Overdose [Unknown]
  - Vomiting [Unknown]
  - Metabolic acidosis [Unknown]
  - Dyspnoea [Unknown]
  - Irritability [Unknown]
  - Chromaturia [Unknown]
  - Generalised tonic-clonic seizure [Unknown]
  - Coma [Unknown]
  - Restlessness [Unknown]
  - Tachypnoea [Unknown]
